FAERS Safety Report 17911704 (Version 3)
Quarter: 2020Q2

REPORT INFORMATION
  Report Type: Spontaneous
  Country: US (occurrence: US)
  Receive Date: 20200618
  Receipt Date: 20200625
  Transmission Date: 20200714
  Serious: No
  Sender: FDA-Public Use
  Company Number: US-PFIZER INC-2020236378

PATIENT
  Age: 77 Year
  Sex: Male
  Weight: 127.01 kg

DRUGS (2)
  1. CYMBALTA [Concomitant]
     Active Substance: DULOXETINE HYDROCHLORIDE
     Dosage: 20 MG [CYMBALTA IN THE DAYTIME]
  2. LYRICA [Suspect]
     Active Substance: PREGABALIN
     Indication: HYPOAESTHESIA
     Dosage: 50 MG, 1X/DAY (25 MG, TWO CAPSULES AT NIGHT BY MOUTH)
     Route: 048
     Dates: start: 2018

REACTIONS (6)
  - Musculoskeletal stiffness [Unknown]
  - Poor quality product administered [Unknown]
  - Product physical issue [Unknown]
  - Body height decreased [Unknown]
  - Paranoid personality disorder [Unknown]
  - Drug ineffective [Unknown]
